FAERS Safety Report 12396831 (Version 2)
Quarter: 2016Q2

REPORT INFORMATION
  Report Type: Spontaneous
  Country: US (occurrence: US)
  Receive Date: 20160524
  Receipt Date: 20160614
  Transmission Date: 20160815
  Serious: Yes (Hospitalization, Other)
  Sender: FDA-Public Use
  Company Number: PHHY2016US069326

PATIENT
  Age: 28 Year
  Sex: Male

DRUGS (22)
  1. TRAZODONE [Suspect]
     Active Substance: TRAZODONE HYDROCHLORIDE
     Indication: PRODUCT USED FOR UNKNOWN INDICATION
     Dosage: 50 MG, QD (AT NIGHT)
     Route: 048
  2. CRANBERRY//VACCINIUM MACROCARPON [Suspect]
     Active Substance: CRANBERRY
     Dosage: 2000 MG, QD (TABLET)
     Route: 048
  3. DULCOLAX NOS [Suspect]
     Active Substance: BISACODYL OR DOCUSATE SODIUM
     Indication: PRODUCT USED FOR UNKNOWN INDICATION
     Dosage: 10 MG, QOD
     Route: 054
  4. COLACE [Suspect]
     Active Substance: DOCUSATE SODIUM
     Indication: PRODUCT USED FOR UNKNOWN INDICATION
     Dosage: 1 DF, QOD
     Route: 048
  5. XANAX [Suspect]
     Active Substance: ALPRAZOLAM
     Indication: PRODUCT USED FOR UNKNOWN INDICATION
     Dosage: 1 DF, TID
     Route: 048
  6. TIZANIDINE. [Suspect]
     Active Substance: TIZANIDINE
     Indication: PRODUCT USED FOR UNKNOWN INDICATION
     Dosage: 1.5 DF, QID
     Route: 048
  7. PRILOSEC [Suspect]
     Active Substance: OMEPRAZOLE MAGNESIUM
     Indication: PRODUCT USED FOR UNKNOWN INDICATION
     Dosage: 20 MG, QD
     Route: 048
  8. HYDRODIURIL [Suspect]
     Active Substance: HYDROCHLOROTHIAZIDE
     Indication: PRODUCT USED FOR UNKNOWN INDICATION
     Dosage: 25 MG, QD
     Route: 048
  9. ENDOCET [Suspect]
     Active Substance: ACETAMINOPHEN\OXYCODONE HYDROCHLORIDE
     Indication: PRODUCT USED FOR UNKNOWN INDICATION
     Dosage: 1 DF, Q4H
     Route: 048
  10. CRANBERRY//VACCINIUM MACROCARPON [Suspect]
     Active Substance: CRANBERRY
     Indication: PRODUCT USED FOR UNKNOWN INDICATION
     Dosage: 500 MG, QD (CAPSULE)
     Route: 048
  11. MULTI VITAMIN [Suspect]
     Active Substance: VITAMINS
     Indication: PRODUCT USED FOR UNKNOWN INDICATION
     Dosage: UNK UNK, QD
     Route: 048
  12. LIORESAL [Suspect]
     Active Substance: BACLOFEN
     Indication: PRODUCT USED FOR UNKNOWN INDICATION
     Dosage: 944.3 UG, QD
     Route: 037
  13. ESIDRIX [Suspect]
     Active Substance: HYDROCHLOROTHIAZIDE
     Indication: PRODUCT USED FOR UNKNOWN INDICATION
     Dosage: 25 MG, QD
     Route: 048
  14. AMBIEN [Suspect]
     Active Substance: ZOLPIDEM TARTRATE
     Indication: PRODUCT USED FOR UNKNOWN INDICATION
     Dosage: 10 MG, QD (ONCE AT NIGHT)
     Route: 048
  15. LIORESAL [Suspect]
     Active Substance: BACLOFEN
     Dosage: 12 UG, QD
     Route: 037
     Dates: start: 20160501
  16. LIORESAL [Suspect]
     Active Substance: BACLOFEN
     Dosage: 300 UG, QD
     Route: 037
     Dates: start: 20160502
  17. LIORESAL [Suspect]
     Active Substance: BACLOFEN
     Indication: PRODUCT USED FOR UNKNOWN INDICATION
     Dosage: 0.5 DF, QD (IN THE MORNING)
     Route: 048
  18. BACLOFEN. [Suspect]
     Active Substance: BACLOFEN
     Indication: PRODUCT USED FOR UNKNOWN INDICATION
     Dosage: 10 MG, QD
     Route: 048
  19. TIZANIDINE. [Suspect]
     Active Substance: TIZANIDINE
     Dosage: 6 MG, QID AS NEEDED
     Route: 048
  20. GABAPENTIN. [Suspect]
     Active Substance: GABAPENTIN
     Indication: PRODUCT USED FOR UNKNOWN INDICATION
     Dosage: 7 DF, QD (2 CAPS TWICE DAILY AND 3 CAPS AT NIGHT)
     Route: 048
  21. CYMBALTA [Suspect]
     Active Substance: DULOXETINE HYDROCHLORIDE
     Indication: PRODUCT USED FOR UNKNOWN INDICATION
     Dosage: 1 DF, BID
     Route: 048
  22. OXYBUTYNIN [Suspect]
     Active Substance: OXYBUTYNIN
     Indication: PRODUCT USED FOR UNKNOWN INDICATION
     Dosage: 5 MG, QD
     Route: 048

REACTIONS (10)
  - Pain in extremity [Recovering/Resolving]
  - Hypertonia [Recovering/Resolving]
  - Muscle spasticity [Recovering/Resolving]
  - Muscle spasms [Recovering/Resolving]
  - Urinary tract infection [Recovered/Resolved]
  - Movement disorder [Recovering/Resolving]
  - Discomfort [Recovering/Resolving]
  - Muscle rigidity [Recovering/Resolving]
  - Drug withdrawal syndrome [Recovering/Resolving]
  - Hypotension [Recovering/Resolving]

NARRATIVE: CASE EVENT DATE: 201605
